FAERS Safety Report 5229529-3 (Version None)
Quarter: 2007Q1

REPORT INFORMATION
  Report Type: 
  Country: None (occurrence: None)
  Receive Date: 20070201
  Receipt Date: 20070119
  Transmission Date: 20070707
  Serious: Yes (Other)
  Sender: FDA-Public Use
  Company Number: 2006SP008923

PATIENT
  Age: 47 Year
  Sex: Male
  Weight: 90.2658 kg

DRUGS (2)
  1. PEGASYS [Suspect]
     Indication: HEPATITIS C
     Dosage: 90 MCG
     Dates: start: 20061207
  2. COPEGUS [Suspect]
     Indication: HEPATITIS C
     Dosage: 600 MG
     Dates: start: 20061207

REACTIONS (24)
  - ABDOMINAL PAIN [None]
  - ANAEMIA [None]
  - ASTHENIA [None]
  - BACK PAIN [None]
  - BONE PAIN [None]
  - COLD SWEAT [None]
  - CONFUSIONAL STATE [None]
  - COUGH [None]
  - DEHYDRATION [None]
  - DYSPNOEA EXERTIONAL [None]
  - EXTRASYSTOLES [None]
  - FRUSTRATION [None]
  - IMPAIRED SELF-CARE [None]
  - INSOMNIA [None]
  - MOVEMENT DISORDER [None]
  - MYALGIA [None]
  - NAUSEA [None]
  - ORAL INTAKE REDUCED [None]
  - PAIN [None]
  - PRURITUS [None]
  - RASH MACULAR [None]
  - ULCER [None]
  - VOMITING [None]
  - WEIGHT DECREASED [None]
